FAERS Safety Report 12793858 (Version 2)
Quarter: 2018Q2

REPORT INFORMATION
  Report Type: Spontaneous
  Country: US (occurrence: US)
  Receive Date: 20160929
  Receipt Date: 20180402
  Transmission Date: 20180711
  Serious: No
  Sender: FDA-Public Use
  Company Number: US-JAZZ-2016-US-011925

PATIENT
  Sex: Male

DRUGS (11)
  1. PROAIR HFA [Concomitant]
     Active Substance: ALBUTEROL SULFATE
  2. ATORVASTATIN [Concomitant]
     Active Substance: ATORVASTATIN
  3. CLONAZEPAM. [Concomitant]
     Active Substance: CLONAZEPAM
  4. XYREM [Suspect]
     Active Substance: SODIUM OXYBATE
     Indication: CATAPLEXY
     Dosage: 4.5 G, BID
     Route: 048
     Dates: start: 200612, end: 2008
  5. XYREM [Suspect]
     Active Substance: SODIUM OXYBATE
     Dosage: 4 G, BID
     Route: 048
  6. XYREM [Suspect]
     Active Substance: SODIUM OXYBATE
     Dosage: 3.5 G, BID
     Route: 048
  7. SYMBICORT [Concomitant]
     Active Substance: BUDESONIDE\FORMOTEROL FUMARATE DIHYDRATE
  8. LISINOPRIL AND HYDROCHLOROTHIAZIDE [Concomitant]
     Active Substance: HYDROCHLOROTHIAZIDE\LISINOPRIL
  9. XYREM [Suspect]
     Active Substance: SODIUM OXYBATE
     Indication: NARCOLEPSY
     Dosage: 2.25 G, BID
     Route: 048
     Dates: start: 200610, end: 200612
  10. METHYLPHENIDATE. [Concomitant]
     Active Substance: METHYLPHENIDATE
  11. CARVEDILOL. [Concomitant]
     Active Substance: CARVEDILOL

REACTIONS (8)
  - Condition aggravated [Unknown]
  - Anaemia [Recovered/Resolved]
  - Gastrooesophageal reflux disease [Recovered/Resolved]
  - Weight decreased [Unknown]
  - Feeling abnormal [Unknown]
  - Dyspepsia [Recovered/Resolved]
  - Abnormal dreams [Unknown]
  - Vitamin D deficiency [Recovered/Resolved]
